FAERS Safety Report 4578811-1 (Version None)
Quarter: 2005Q1

REPORT INFORMATION
  Report Type: 
  Country: None (occurrence: None)
  Receive Date: 20050207
  Receipt Date: 20050207
  Transmission Date: 20050727
  Serious: Yes (Hospitalization)
  Sender: FDA-Public Use
  Company Number: None

PATIENT
  Age: 57 Year
  Sex: Female
  Weight: 76.6579 kg

DRUGS (7)
  1. TOPOTECAN [Suspect]
     Indication: OVARIAN CANCER
     Dosage: 2.2 MG Q 21 DAYS IV
     Route: 042
     Dates: start: 20040802, end: 20040917
  2. THALIDOMIDE 50MG TABS [Suspect]
     Dosage: 400 MG DAILY ORAL
     Route: 048
     Dates: start: 20040802
  3. ZYRTEC [Concomitant]
  4. PROTONIX [Concomitant]
  5. MIRALAX [Concomitant]
  6. DARVOCET [Concomitant]
  7. XANAX [Concomitant]

REACTIONS (2)
  - CHEST PAIN [None]
  - PULMONARY EMBOLISM [None]
